FAERS Safety Report 21789403 (Version 1)
Quarter: 2022Q4

REPORT INFORMATION
  Report Type: Spontaneous
  Country: US (occurrence: None)
  Receive Date: 20221223
  Receipt Date: 20221223
  Transmission Date: 20230113
  Serious: No
  Sender: FDA-Public Use
  Company Number: None

PATIENT

DRUGS (2)
  1. DEFINITY [Suspect]
     Active Substance: PERFLUTREN
  2. PROPYLENE GLYCOL [Suspect]
     Active Substance: PROPYLENE GLYCOL

REACTIONS (2)
  - Anaphylactic reaction [None]
  - Cardiac failure congestive [None]
